FAERS Safety Report 8961893 (Version 2)
Quarter: 2013Q1

REPORT INFORMATION
  Report Type: Spontaneous
  Country: US (occurrence: US)
  Receive Date: 20121212
  Receipt Date: 20130120
  Transmission Date: 20140127
  Serious: No
  Sender: FDA-Public Use
  Company Number: US-ASTRAZENECA-2012SE90598

PATIENT
  Age: 58 Year
  Sex: Female

DRUGS (9)
  1. NEXIUM [Suspect]
     Route: 048
     Dates: start: 200703
  2. LISINOPRIL [Suspect]
     Route: 048
  3. FLOVENT HFA [Concomitant]
  4. HCTZ [Concomitant]
  5. METFORMIN [Concomitant]
  6. ATORVASTATIN [Concomitant]
  7. LANTUS INSUN [Concomitant]
  8. VOLTAREN GEL [Concomitant]
  9. TRAMADOL [Concomitant]

REACTIONS (2)
  - Abdominal discomfort [Unknown]
  - Drug dose omission [Unknown]
